FAERS Safety Report 20552299 (Version 5)
Quarter: 2022Q1

REPORT INFORMATION
  Report Type: Spontaneous
  Country: AT (occurrence: AT)
  Receive Date: 20220304
  Receipt Date: 20220330
  Transmission Date: 20220423
  Serious: Yes (Disabling, Other)
  Sender: FDA-Public Use
  Company Number: AT-NOVARTISPH-NVSC2022AT048425

PATIENT
  Sex: Female

DRUGS (10)
  1. TEGRETOL [Suspect]
     Active Substance: CARBAMAZEPINE
     Indication: Prophylaxis
     Dosage: 400 MG, PRN (AS NECESSARY)
     Route: 065
  2. RISPERDAL [Suspect]
     Active Substance: RISPERIDONE
     Indication: Drug therapy
     Dosage: 2 MG
     Route: 065
     Dates: start: 2002
  3. RISPERDAL [Suspect]
     Active Substance: RISPERIDONE
     Indication: Restlessness
     Dosage: UNTIL 04 FEB 2002
     Route: 065
     Dates: start: 20020123
  4. TRAZODONE HYDROCHLORIDE [Suspect]
     Active Substance: TRAZODONE HYDROCHLORIDE
     Indication: Sleep disorder therapy
     Dosage: 150 MG
     Route: 065
  5. NEUROBION FORTE [Suspect]
     Active Substance: CYANOCOBALAMIN\PYRIDOXINE HYDROCHLORIDE\THIAMINE DISULFIDE
     Indication: Product used for unknown indication
     Dosage: 3 DOSAGE FORM
     Route: 065
  6. LEVOTHYROXINE SODIUM\LIOTHYRONINE SODIUM [Concomitant]
     Active Substance: LEVOTHYROXINE SODIUM\LIOTHYRONINE SODIUM
     Indication: Thyroid therapy
     Dosage: 1 DOSAGE FORM, QD
     Route: 065
  7. LYRICA [Concomitant]
     Active Substance: PREGABALIN
     Indication: Product used for unknown indication
     Dosage: 50 MG, HARD CAPSULES
     Route: 065
  8. BENSERAZIDE\LEVODOPA [Concomitant]
     Active Substance: BENSERAZIDE\LEVODOPA
     Indication: Product used for unknown indication
     Dosage: 100MG/25MG RETARD CAPSULES
     Route: 065
  9. BENSERAZIDE\LEVODOPA [Concomitant]
     Active Substance: BENSERAZIDE\LEVODOPA
     Dosage: UNK, (100MG/25MG RETARD TABLETS)
     Route: 065
  10. MIRTAZAPIN RATIOPHARM [Concomitant]
     Indication: Product used for unknown indication
     Dosage: 30 MG, FILM COATED TABLETS
     Route: 065

REACTIONS (15)
  - Suicidal ideation [Unknown]
  - Parkinson^s disease [Unknown]
  - Restless legs syndrome [Unknown]
  - Blood creatine phosphokinase increased [Unknown]
  - Skin disorder [Unknown]
  - Bruxism [Unknown]
  - Sleep apnoea syndrome [Unknown]
  - Bronchitis [Unknown]
  - Movement disorder [Unknown]
  - Dyspnoea [Unknown]
  - Galactorrhoea [Unknown]
  - Gamma-glutamyltransferase increased [Unknown]
  - Dyskinesia [Unknown]
  - Off label use [Unknown]
  - Product use in unapproved indication [Unknown]

NARRATIVE: CASE EVENT DATE: 20020101
